FAERS Safety Report 4673509-3 (Version None)
Quarter: 2005Q2

REPORT INFORMATION
  Report Type: 
  Country: None (occurrence: None)
  Receive Date: 20050523
  Receipt Date: 20050411
  Transmission Date: 20051028
  Serious: Yes (Other)
  Sender: FDA-Public Use
  Company Number: 2005073989

PATIENT
  Sex: Female

DRUGS (1)
  1. BEXTRA [Suspect]
     Indication: OSTEOARTHRITIS
     Dosage: (40 MG), ORAL
     Route: 048

REACTIONS (5)
  - GLOSSITIS [None]
  - HYPERSENSITIVITY [None]
  - MICTURITION FREQUENCY DECREASED [None]
  - OEDEMA [None]
  - PYREXIA [None]
